FAERS Safety Report 14835995 (Version 3)
Quarter: 2018Q3

REPORT INFORMATION
  Report Type: Report from Study
  Country: US (occurrence: US)
  Receive Date: 20180502
  Receipt Date: 20180828
  Transmission Date: 20181010
  Serious: Yes (Other)
  Sender: FDA-Public Use
  Company Number: US-AMGEN-USASL2018057975

PATIENT
  Age: 63 Year
  Sex: Female

DRUGS (3)
  1. ENBREL [Suspect]
     Active Substance: ETANERCEPT
     Indication: RHEUMATOID ARTHRITIS
     Dosage: UNK
     Route: 065
     Dates: end: 2018
  2. ENBREL [Suspect]
     Active Substance: ETANERCEPT
     Dosage: 50 MG, QWK
     Route: 065
     Dates: start: 20180702, end: 20180816
  3. ENBREL [Suspect]
     Active Substance: ETANERCEPT
     Dosage: 50 MG, QWK
     Route: 065
     Dates: start: 20180820

REACTIONS (6)
  - Lip swelling [Unknown]
  - Haemorrhoidal haemorrhage [Not Recovered/Not Resolved]
  - Dyspnoea [Unknown]
  - Gastrointestinal haemorrhage [Unknown]
  - Post procedural complication [Unknown]
  - Swollen tongue [Unknown]

NARRATIVE: CASE EVENT DATE: 2018
